FAERS Safety Report 9231702 (Version 1)
Quarter: 2013Q2

REPORT INFORMATION
  Report Type: Spontaneous
  Country: US (occurrence: US)
  Receive Date: 20130415
  Receipt Date: 20130415
  Transmission Date: 20140414
  Serious: No
  Sender: FDA-Public Use
  Company Number: US-PFIZER INC-2013117725

PATIENT
  Age: 50 Year
  Sex: Female
  Weight: 66.21 kg

DRUGS (5)
  1. PREGABALIN [Suspect]
     Indication: FIBROMYALGIA
     Dosage: UNK
  2. ENJUVIA [Concomitant]
     Dosage: UNK
  3. FLUOXETINE [Concomitant]
     Dosage: UNK
  4. NEXIUM [Concomitant]
     Dosage: UNK
  5. LEVOTHYROXINE [Concomitant]
     Dosage: UNK

REACTIONS (4)
  - Drug ineffective [Unknown]
  - Abdominal pain upper [Unknown]
  - Dizziness [Unknown]
  - Vomiting [Unknown]
